FAERS Safety Report 18021242 (Version 3)
Quarter: 2020Q4

REPORT INFORMATION
  Report Type: Spontaneous
  Country: CH (occurrence: CH)
  Receive Date: 20200714
  Receipt Date: 20201012
  Transmission Date: 20210113
  Serious: Yes (Death)
  Sender: FDA-Public Use
  Company Number: CH-ROCHE-2638568

PATIENT
  Sex: Female
  Weight: 82 kg

DRUGS (7)
  1. AVASTIN [Suspect]
     Active Substance: BEVACIZUMAB
     Indication: INVASIVE DUCTAL BREAST CARCINOMA
     Route: 042
     Dates: start: 20200325, end: 20200325
  2. TAXOL [Concomitant]
     Active Substance: PACLITAXEL
     Indication: INVASIVE DUCTAL BREAST CARCINOMA
     Route: 042
     Dates: start: 20200325, end: 20200401
  3. FASLODEX [Concomitant]
     Active Substance: FULVESTRANT
     Indication: INVASIVE DUCTAL BREAST CARCINOMA
     Dates: start: 201607, end: 202003
  4. FASLODEX [Concomitant]
     Active Substance: FULVESTRANT
     Indication: LYMPHOEDEMA
  5. IBRANCE [Concomitant]
     Active Substance: PALBOCICLIB
     Indication: LYMPHOEDEMA
  6. XGEVA [Concomitant]
     Active Substance: DENOSUMAB
     Indication: INVASIVE DUCTAL BREAST CARCINOMA
     Dates: start: 201506, end: 202004
  7. IBRANCE [Concomitant]
     Active Substance: PALBOCICLIB
     Indication: INVASIVE DUCTAL BREAST CARCINOMA
     Route: 065
     Dates: start: 201904, end: 202003

REACTIONS (2)
  - Large intestine perforation [Fatal]
  - Leukopenia [Fatal]

NARRATIVE: CASE EVENT DATE: 20200405
